FAERS Safety Report 10457095 (Version 1)
Quarter: 2014Q3

REPORT INFORMATION
  Report Type: Spontaneous
  Country: US (occurrence: None)
  Receive Date: 20140902
  Receipt Date: 20140902
  Transmission Date: 20150326
  Serious: Yes (Hospitalization)
  Sender: FDA-Public Use
  Company Number: 201406096

PATIENT
  Age: 64 Year
  Sex: Male
  Weight: 86.64 kg

DRUGS (5)
  1. TESTOSTERONE GEL (TESTOSTERONE) [Concomitant]
  2. FLONASE [Concomitant]
     Active Substance: FLUTICASONE PROPIONATE
  3. MONTELUKAST [Concomitant]
     Active Substance: MONTELUKAST SODIUM
  4. SIMVASTATIN (SIMAVASTATIN) [Concomitant]
  5. XIAFLEX [Suspect]
     Active Substance: COLLAGENASE CLOSTRIDIUM HISTOLYTICUM
     Indication: PEYRONIE^S DISEASE
     Dosage: 0.58 MG, 1 IN 1 D, INTRALESIONAL
     Route: 050
     Dates: start: 20140623, end: 20140623

REACTIONS (3)
  - Penile contusion [None]
  - Blood blister [None]
  - Penile pain [None]

NARRATIVE: CASE EVENT DATE: 20140623
